FAERS Safety Report 26000996 (Version 1)
Quarter: 2025Q4

REPORT INFORMATION
  Report Type: Spontaneous
  Country: CN (occurrence: CN)
  Receive Date: 20251105
  Receipt Date: 20251105
  Transmission Date: 20260118
  Serious: Yes (Life-Threatening, Hospitalization, Other)
  Sender: SANOFI AVENTIS
  Company Number: CN-SA-2025SA326410

PATIENT
  Age: 63 Year
  Sex: Male
  Weight: 91 kg

DRUGS (2)
  1. IRBESARTAN [Suspect]
     Active Substance: IRBESARTAN
     Indication: Cirrhosis alcoholic
     Dosage: 0.15 G, QD
     Route: 048
     Dates: start: 20251027, end: 20251027
  2. IRBESARTAN [Suspect]
     Active Substance: IRBESARTAN
     Indication: Henoch-Schonlein purpura nephritis

REACTIONS (2)
  - Hypovolaemic shock [Recovered/Resolved]
  - Blood pressure decreased [Recovered/Resolved]

NARRATIVE: CASE EVENT DATE: 20251027
